FAERS Safety Report 26009924 (Version 1)
Quarter: 2025Q4

REPORT INFORMATION
  Report Type: Spontaneous
  Country: US (occurrence: US)
  Receive Date: 20251107
  Receipt Date: 20251107
  Transmission Date: 20260118
  Serious: Yes (Hospitalization, Other)
  Sender: ROCHE
  Company Number: US-ROCHE-10000411269

PATIENT
  Age: 35 Year
  Sex: Female

DRUGS (3)
  1. CELLCEPT [Suspect]
     Active Substance: MYCOPHENOLATE MOFETIL
     Indication: Product used for unknown indication
     Route: 048
     Dates: start: 202504
  2. LUPKYNIS [Suspect]
     Active Substance: VOCLOSPORIN
     Indication: Lupus nephritis
     Route: 048
     Dates: start: 20220728
  3. RITUXAN [Concomitant]
     Active Substance: RITUXIMAB

REACTIONS (5)
  - Syncope [Unknown]
  - Myocardial infarction [Unknown]
  - Pulmonary hypertension [Unknown]
  - Haemorrhoids [Unknown]
  - Rash [Unknown]

NARRATIVE: CASE EVENT DATE: 20250828
